FAERS Safety Report 14979922 (Version 6)
Quarter: 2018Q3

REPORT INFORMATION
  Report Type: Spontaneous
  Country: PL (occurrence: PL)
  Receive Date: 20180606
  Receipt Date: 20180927
  Transmission Date: 20181010
  Serious: Yes (Hospitalization, Other)
  Sender: FDA-Public Use
  Company Number: PL-MYLANLABS-2018M1037150

PATIENT
  Age: 61 Year
  Sex: Male

DRUGS (8)
  1. FUROSEMIDE. [Suspect]
     Active Substance: FUROSEMIDE
     Indication: PRODUCT USED FOR UNKNOWN INDICATION
     Dosage: UNK
  2. BISOPROLOL [Suspect]
     Active Substance: BISOPROLOL
     Indication: PRODUCT USED FOR UNKNOWN INDICATION
     Dosage: UNK
  3. DICLOFENAC [Suspect]
     Active Substance: DICLOFENAC
     Indication: GOUT
     Dosage: DOSE DIFFICULT TO ESTIMATE
     Route: 048
  4. ALLOPURINOL. [Suspect]
     Active Substance: ALLOPURINOL
     Indication: PRODUCT USED FOR UNKNOWN INDICATION
     Dosage: UNK
  5. BUDESONIDE. [Suspect]
     Active Substance: BUDESONIDE
     Indication: PRODUCT USED FOR UNKNOWN INDICATION
     Dosage: UNK
  6. IPRATROPIUM [Suspect]
     Active Substance: IPRATROPIUM
     Indication: PRODUCT USED FOR UNKNOWN INDICATION
     Dosage: UNK
  7. LEVOFLOXACIN. [Suspect]
     Active Substance: LEVOFLOXACIN
     Indication: PRODUCT USED FOR UNKNOWN INDICATION
     Dosage: UNK
  8. AMLODIPINE [Suspect]
     Active Substance: AMLODIPINE BESYLATE
     Indication: PRODUCT USED FOR UNKNOWN INDICATION
     Dosage: UNK

REACTIONS (17)
  - Gastrointestinal disorder [Unknown]
  - Overdose [Unknown]
  - Intentional overdose [Unknown]
  - Occult blood positive [Recovering/Resolving]
  - Duodenitis [Unknown]
  - Disease recurrence [Unknown]
  - Oesophagitis [Unknown]
  - Chest pain [Recovering/Resolving]
  - Bronchitis [Recovering/Resolving]
  - Blood pressure increased [Unknown]
  - Drug abuse [Unknown]
  - Gout [Recovering/Resolving]
  - Normocytic anaemia [Unknown]
  - Intentional product misuse [Unknown]
  - Gastrointestinal erosion [Unknown]
  - Tubulointerstitial nephritis [Recovered/Resolved]
  - Drug ineffective [Recovering/Resolving]
